FAERS Safety Report 18999944 (Version 2)
Quarter: 2021Q2

REPORT INFORMATION
  Report Type: Spontaneous
  Country: JP (occurrence: JP)
  Receive Date: 20210311
  Receipt Date: 20210512
  Transmission Date: 20210717
  Serious: Yes (Life-Threatening, Other)
  Sender: FDA-Public Use
  Company Number: JP-BAYER-2021-103302

PATIENT
  Age: 74 Year
  Sex: Male
  Weight: 48.6 kg

DRUGS (2)
  1. ZOLADEX [Concomitant]
     Active Substance: GOSERELIN ACETATE
     Indication: PROSTATE CANCER
     Dosage: UNK
  2. NUBEQA [Suspect]
     Active Substance: DAROLUTAMIDE
     Indication: HORMONE-REFRACTORY PROSTATE CANCER
     Dosage: 600 MG, BID
     Dates: start: 20201030, end: 20210311

REACTIONS (2)
  - Pulmonary embolism [Not Recovered/Not Resolved]
  - Vena cava embolism [Not Recovered/Not Resolved]

NARRATIVE: CASE EVENT DATE: 20210310
